FAERS Safety Report 21762783 (Version 1)
Quarter: 2022Q4

REPORT INFORMATION
  Report Type: Report from Study
  Country: US (occurrence: US)
  Receive Date: 20221221
  Receipt Date: 20221221
  Transmission Date: 20230112
  Serious: No
  Sender: FDA-Public Use
  Company Number: US-ABBVIE-22K-163-4499681-00

PATIENT
  Age: 74 Year
  Sex: Male

DRUGS (3)
  1. SKYRIZI [Suspect]
     Active Substance: RISANKIZUMAB-RZAA
     Indication: Psoriasis
     Dosage: WEEK 0.?STRENGTH: 150 MG/ML
     Route: 058
     Dates: start: 20220422, end: 20220422
  2. SKYRIZI [Suspect]
     Active Substance: RISANKIZUMAB-RZAA
     Dosage: WEEK 04.?STRENGTH: 150 MG/ML
     Route: 058
     Dates: start: 20220520, end: 20220520
  3. SKYRIZI [Suspect]
     Active Substance: RISANKIZUMAB-RZAA
     Dosage: WEEK 12 AND THEREAFTER.?STRENGTH: 150 MG/ML
     Route: 058
     Dates: start: 20220715

REACTIONS (5)
  - Frequent bowel movements [Unknown]
  - Fatigue [Unknown]
  - Abdominal pain [Unknown]
  - Psoriasis [Recovering/Resolving]
  - Skin exfoliation [Recovering/Resolving]

NARRATIVE: CASE EVENT DATE: 20220501
